FAERS Safety Report 7078001-7 (Version None)
Quarter: 2010Q4

REPORT INFORMATION
  Report Type: 
  Country: None (occurrence: None)
  Receive Date: 20101101
  Receipt Date: 20101018
  Transmission Date: 20110411
  Serious: Yes (Death, Other)
  Sender: FDA-Public Use
  Company Number: US-AMGEN-USASP2010000547

PATIENT

DRUGS (6)
  1. NPLATE [Suspect]
     Indication: IDIOPATHIC THROMBOCYTOPENIC PURPURA
     Dosage: UNK
     Dates: start: 20100302, end: 20100430
  2. NPLATE [Suspect]
     Dates: start: 20100501
  3. NPLATE [Suspect]
     Dates: start: 20100501
  4. NPLATE [Suspect]
     Dates: start: 20100501
  5. NPLATE [Suspect]
  6. CORTICOSTEROIDS [Concomitant]
     Dosage: UNK
     Dates: start: 20100110

REACTIONS (2)
  - HAEMORRHAGE [None]
  - THROMBOCYTOPENIA [None]
